FAERS Safety Report 18307505 (Version 1)
Quarter: 2020Q3

REPORT INFORMATION
  Report Type: Report from Study
  Country: DE (occurrence: DE)
  Receive Date: 20200924
  Receipt Date: 20200924
  Transmission Date: 20201103
  Serious: Yes (Other)
  Sender: FDA-Public Use
  Company Number: DE-MYLANLABS-2020M1080096

PATIENT
  Sex: Female
  Weight: 88 kg

DRUGS (2)
  1. LAMOTRIGINE. [Suspect]
     Active Substance: LAMOTRIGINE
     Indication: EPILEPSY
     Dosage: 1 DOSAGE FORM, QD
     Dates: start: 200404
  2. VELAFEE [Suspect]
     Active Substance: DIENOGEST\ETHINYL ESTRADIOL
     Indication: HORMONAL CONTRACEPTION
     Dosage: UNK
     Dates: start: 201904

REACTIONS (2)
  - Varicophlebitis [Unknown]
  - Thrombosis [Unknown]

NARRATIVE: CASE EVENT DATE: 20200805
